FAERS Safety Report 16456945 (Version 1)
Quarter: 2019Q3

REPORT INFORMATION
  Report Type: Spontaneous
  Country: US (occurrence: US)
  Receive Date: 20190619
  Receipt Date: 20190619
  Transmission Date: 20191004
  Serious: No
  Sender: FDA-Public Use
  Company Number: None

PATIENT
  Age: 49 Day
  Sex: Female
  Weight: 112.5 kg

DRUGS (1)
  1. QBREXZA [Suspect]
     Active Substance: GLYCOPYRRONIUM TOSYLATE
     Indication: HYPERHIDROSIS
     Dosage: ?          QUANTITY:1 1;?
     Route: 061

REACTIONS (4)
  - Ageusia [None]
  - Dry mouth [None]
  - Oropharyngeal pain [None]
  - Application site pain [None]

NARRATIVE: CASE EVENT DATE: 20190619
